FAERS Safety Report 23258483 (Version 3)
Quarter: 2025Q2

REPORT INFORMATION
  Report Type: Spontaneous
  Country: US (occurrence: US)
  Receive Date: 20231204
  Receipt Date: 20250502
  Transmission Date: 20250717
  Serious: Yes (Death)
  Sender: MYLAN
  Company Number: US-MYLANLABS-2023M1128089

PATIENT
  Age: 31 Year
  Sex: Female

DRUGS (40)
  1. XANAX [Suspect]
     Active Substance: ALPRAZOLAM
     Indication: Product used for unknown indication
  2. XANAX [Suspect]
     Active Substance: ALPRAZOLAM
     Route: 065
  3. XANAX [Suspect]
     Active Substance: ALPRAZOLAM
     Route: 065
  4. XANAX [Suspect]
     Active Substance: ALPRAZOLAM
  5. LUMRYZ [Suspect]
     Active Substance: SODIUM OXYBATE
     Indication: Narcolepsy
     Dosage: 4.5 GRAM, QD (ONCE NIGHTLY)
     Dates: start: 20230815, end: 202309
  6. LUMRYZ [Suspect]
     Active Substance: SODIUM OXYBATE
     Dosage: 4.5 GRAM, QD (ONCE NIGHTLY)
     Dates: start: 20230815, end: 202309
  7. LUMRYZ [Suspect]
     Active Substance: SODIUM OXYBATE
     Dosage: 4.5 GRAM, QD (ONCE NIGHTLY)
     Route: 048
     Dates: start: 20230815, end: 202309
  8. LUMRYZ [Suspect]
     Active Substance: SODIUM OXYBATE
     Dosage: 4.5 GRAM, QD (ONCE NIGHTLY)
     Route: 048
     Dates: start: 20230815, end: 202309
  9. LUMRYZ [Suspect]
     Active Substance: SODIUM OXYBATE
     Dosage: 7.5 GRAM, QD, (ONCE NIGHTLY)
     Dates: start: 202309, end: 202310
  10. LUMRYZ [Suspect]
     Active Substance: SODIUM OXYBATE
     Dosage: 7.5 GRAM, QD, (ONCE NIGHTLY)
     Dates: start: 202309, end: 202310
  11. LUMRYZ [Suspect]
     Active Substance: SODIUM OXYBATE
     Dosage: 7.5 GRAM, QD, (ONCE NIGHTLY)
     Route: 048
     Dates: start: 202309, end: 202310
  12. LUMRYZ [Suspect]
     Active Substance: SODIUM OXYBATE
     Dosage: 7.5 GRAM, QD, (ONCE NIGHTLY)
     Route: 048
     Dates: start: 202309, end: 202310
  13. LUMRYZ [Suspect]
     Active Substance: SODIUM OXYBATE
     Dosage: 9 GRAM, QD (ONCE NIGHTLY)
     Dates: start: 20231108, end: 20231108
  14. LUMRYZ [Suspect]
     Active Substance: SODIUM OXYBATE
     Dosage: 9 GRAM, QD (ONCE NIGHTLY)
     Route: 048
     Dates: start: 20231108, end: 20231108
  15. LUMRYZ [Suspect]
     Active Substance: SODIUM OXYBATE
     Dosage: 9 GRAM, QD (ONCE NIGHTLY)
     Dates: start: 20231108, end: 20231108
  16. LUMRYZ [Suspect]
     Active Substance: SODIUM OXYBATE
     Dosage: 9 GRAM, QD (ONCE NIGHTLY)
     Route: 048
     Dates: start: 20231108, end: 20231108
  17. LUMRYZ [Concomitant]
     Active Substance: SODIUM OXYBATE
  18. LUMRYZ [Concomitant]
     Active Substance: SODIUM OXYBATE
     Route: 065
  19. LUMRYZ [Concomitant]
     Active Substance: SODIUM OXYBATE
     Route: 065
  20. LUMRYZ [Concomitant]
     Active Substance: SODIUM OXYBATE
  21. XYREM [Concomitant]
     Active Substance: SODIUM OXYBATE
  22. XYREM [Concomitant]
     Active Substance: SODIUM OXYBATE
     Route: 065
  23. XYREM [Concomitant]
     Active Substance: SODIUM OXYBATE
     Route: 065
  24. XYREM [Concomitant]
     Active Substance: SODIUM OXYBATE
  25. XANAX [Concomitant]
     Active Substance: ALPRAZOLAM
  26. XANAX [Concomitant]
     Active Substance: ALPRAZOLAM
     Route: 065
  27. XANAX [Concomitant]
     Active Substance: ALPRAZOLAM
     Route: 065
  28. XANAX [Concomitant]
     Active Substance: ALPRAZOLAM
  29. LEVOTHYROXINE [Concomitant]
     Active Substance: LEVOTHYROXINE
     Dosage: 75 MILLIGRAM, QD, (DAILY)
  30. LEVOTHYROXINE [Concomitant]
     Active Substance: LEVOTHYROXINE
     Dosage: 75 MILLIGRAM, QD, (DAILY)
     Route: 065
  31. LEVOTHYROXINE [Concomitant]
     Active Substance: LEVOTHYROXINE
     Dosage: 75 MILLIGRAM, QD, (DAILY)
     Route: 065
  32. LEVOTHYROXINE [Concomitant]
     Active Substance: LEVOTHYROXINE
     Dosage: 75 MILLIGRAM, QD, (DAILY)
  33. ADDERALL [Concomitant]
     Active Substance: AMPHETAMINE ASPARTATE\AMPHETAMINE SULFATE\DEXTROAMPHETAMINE SACCHARATE\DEXTROAMPHETAMINE SULFATE
     Dosage: 20 MILLIGRAM, QID,  (FOUR TIMES A DAY)
  34. ADDERALL [Concomitant]
     Active Substance: AMPHETAMINE ASPARTATE\AMPHETAMINE SULFATE\DEXTROAMPHETAMINE SACCHARATE\DEXTROAMPHETAMINE SULFATE
     Dosage: 20 MILLIGRAM, QID,  (FOUR TIMES A DAY)
     Route: 065
  35. ADDERALL [Concomitant]
     Active Substance: AMPHETAMINE ASPARTATE\AMPHETAMINE SULFATE\DEXTROAMPHETAMINE SACCHARATE\DEXTROAMPHETAMINE SULFATE
     Dosage: 20 MILLIGRAM, QID,  (FOUR TIMES A DAY)
     Route: 065
  36. ADDERALL [Concomitant]
     Active Substance: AMPHETAMINE ASPARTATE\AMPHETAMINE SULFATE\DEXTROAMPHETAMINE SACCHARATE\DEXTROAMPHETAMINE SULFATE
     Dosage: 20 MILLIGRAM, QID,  (FOUR TIMES A DAY)
  37. SLYND [Concomitant]
     Active Substance: DROSPIRENONE
     Indication: Contraception
  38. SLYND [Concomitant]
     Active Substance: DROSPIRENONE
     Route: 065
  39. SLYND [Concomitant]
     Active Substance: DROSPIRENONE
     Route: 065
  40. SLYND [Concomitant]
     Active Substance: DROSPIRENONE

REACTIONS (2)
  - Overdose [Fatal]
  - Insomnia [Unknown]

NARRATIVE: CASE EVENT DATE: 20230801
